FAERS Safety Report 8456972-1 (Version None)
Quarter: 2012Q2

REPORT INFORMATION
  Report Type: 
  Country: None (occurrence: None)
  Receive Date: 20120323
  Receipt Date: 20111116
  Transmission Date: 20120825
  Serious: Yes (Hospitalization, Other)
  Sender: FDA-Public Use
  Company Number: 163-21880-11090690

PATIENT
  Age: 63 Year
  Sex: Female

DRUGS (7)
  1. LOVENOX [Concomitant]
  2. WARFARIN SODIUM [Concomitant]
  3. DECADRON [Concomitant]
  4. OXYGEN (OXYGEN) [Concomitant]
  5. ZOMETA [Concomitant]
  6. REVLIMID [Suspect]
     Indication: MULTIPLE MYELOMA
     Dosage: 25 MG, QHS, PO
     Route: 048
     Dates: start: 20101103, end: 20110613
  7. TOPROL-XL [Concomitant]

REACTIONS (1)
  - MYOCARDIAL INFARCTION [None]
